FAERS Safety Report 16188012 (Version 1)
Quarter: 2019Q2

REPORT INFORMATION
  Report Type: Spontaneous
  Country: DK (occurrence: DK)
  Receive Date: 20190412
  Receipt Date: 20190412
  Transmission Date: 20190711
  Serious: Yes (Other)
  Sender: FDA-Public Use
  Company Number: DK-CELLTRION INC.-2019DK020261

PATIENT

DRUGS (4)
  1. MTX [METHOTREXATE] [Concomitant]
     Active Substance: METHOTREXATE SODIUM
     Dosage: UNK
  2. INFLECTRA [Suspect]
     Active Substance: INFLIXIMAB-DYYB
     Dosage: UNK
     Route: 065
     Dates: start: 20180109, end: 20180109
  3. PREDNISOLON [PREDNISOLONE] [Concomitant]
     Active Substance: PREDNISOLONE
     Indication: STILL^S DISEASE
     Dosage: UNK
  4. INFLECTRA [Suspect]
     Active Substance: INFLIXIMAB-DYYB
     Dosage: UNK
     Route: 065
     Dates: start: 20180123, end: 20180123

REACTIONS (15)
  - Cognitive disorder [Not Recovered/Not Resolved]
  - Headache [Unknown]
  - Reading disorder [Unknown]
  - Fatigue [Not Recovered/Not Resolved]
  - Lacrimation increased [Unknown]
  - Arthralgia [Unknown]
  - Impaired work ability [Not Recovered/Not Resolved]
  - Vision blurred [Unknown]
  - Listeriosis [Recovering/Resolving]
  - Pyrexia [Unknown]
  - Disturbance in attention [Unknown]
  - Memory impairment [Not Recovered/Not Resolved]
  - Brain abscess [Recovering/Resolving]
  - Dysgraphia [Unknown]
  - Immune system disorder [Unknown]

NARRATIVE: CASE EVENT DATE: 2018
